FAERS Safety Report 4448317-9 (Version None)
Quarter: 2004Q3

REPORT INFORMATION
  Report Type: 
  Country: None (occurrence: None)
  Receive Date: 20040913
  Receipt Date: 20040826
  Transmission Date: 20050211
  Serious: Yes (Disabling)
  Sender: FDA-Public Use
  Company Number: 2004230447PL

PATIENT
  Age: 62 Year
  Sex: Female

DRUGS (2)
  1. XANAX [Suspect]
     Dosage: 2 MG/DAY, ORAL
     Route: 048
     Dates: start: 20020101, end: 20040701
  2. TIANEPTINE [Concomitant]

REACTIONS (5)
  - BALANCE DISORDER [None]
  - DEPRESSION [None]
  - DIPLOPIA [None]
  - TINNITUS [None]
  - WEIGHT DECREASED [None]
